FAERS Safety Report 18135170 (Version 1)
Quarter: 2020Q3

REPORT INFORMATION
  Report Type: Spontaneous
  Country: US (occurrence: US)
  Receive Date: 20200810
  Receipt Date: 20200810
  Transmission Date: 20201103
  Serious: No
  Sender: FDA-Public Use
  Company Number: None

PATIENT
  Age: 80 Year
  Sex: Female

DRUGS (1)
  1. OTEZLA [Suspect]
     Active Substance: APREMILAST
     Indication: PSORIASIS
     Route: 048
     Dates: start: 20200729

REACTIONS (6)
  - Decreased appetite [None]
  - Nausea [None]
  - Diarrhoea [None]
  - Headache [None]
  - Somnolence [None]
  - Vomiting [None]

NARRATIVE: CASE EVENT DATE: 20200731
